FAERS Safety Report 6741132-2 (Version None)
Quarter: 2010Q2

REPORT INFORMATION
  Report Type: 
  Country: None (occurrence: None)
  Receive Date: 20100525
  Receipt Date: 20100525
  Transmission Date: 20101027
  Serious: Yes (Hospitalization)
  Sender: FDA-Public Use
  Company Number: None

PATIENT
  Sex: Female
  Weight: 63.5036 kg

DRUGS (2)
  1. WELLBUTRIN [Suspect]
     Indication: NECK PAIN
     Dosage: 300 MG DAILY PO
     Route: 048
     Dates: start: 20100318, end: 20100518
  2. METHYLPREDNISOLONE [Suspect]

REACTIONS (3)
  - CONVULSION [None]
  - TENDONITIS [None]
  - TINNITUS [None]
